FAERS Safety Report 9617602 (Version 1)
Quarter: 2013Q4

REPORT INFORMATION
  Report Type: Spontaneous
  Country: HU (occurrence: HU)
  Receive Date: 20131011
  Receipt Date: 20131011
  Transmission Date: 20140711
  Serious: Yes (Death)
  Sender: FDA-Public Use
  Company Number: HU-CELGENEUS-076-21660-13100033

PATIENT
  Age: 83 Year
  Sex: Female

DRUGS (2)
  1. ABRAXANE [Suspect]
     Indication: OVARIAN EPITHELIAL CANCER
     Route: 041
  2. CARBOPLATIN [Suspect]
     Indication: OVARIAN EPITHELIAL CANCER
     Route: 065

REACTIONS (2)
  - Death [Fatal]
  - Neuropathy peripheral [Unknown]
